FAERS Safety Report 8691758 (Version 2)
Quarter: 2012Q4

REPORT INFORMATION
  Report Type: 
  Country: DE (occurrence: DE)
  Receive Date: 20120730
  Receipt Date: 20121011
  Transmission Date: 20130627
  Serious: Yes (Other)
  Sender: FDA-Public Use
  Company Number: DE-TEVA-350123GER

PATIENT
  Age: 62 Year
  Sex: Female

DRUGS (3)
  1. PACLITAXEL [Suspect]
     Indication: ACRAL LENTIGINOUS MELANOMA STAGE UNSPECIFIED
     Route: 042
  2. CISPLATIN [Concomitant]
     Indication: ACRAL LENTIGINOUS MELANOMA STAGE UNSPECIFIED
     Route: 042
  3. SORAFENIB [Concomitant]
     Indication: ACRAL LENTIGINOUS MELANOMA STAGE UNSPECIFIED
     Dosage: 800 Milligram Daily;
     Route: 048

REACTIONS (1)
  - Cystoid macular oedema [Recovered/Resolved]
